FAERS Safety Report 16562097 (Version 1)
Quarter: 2019Q3

REPORT INFORMATION
  Report Type: Spontaneous
  Country: US (occurrence: US)
  Receive Date: 20190711
  Receipt Date: 20190711
  Transmission Date: 20191004
  Serious: Yes (Other)
  Sender: FDA-Public Use
  Company Number: US-TEVA-2019-US-1072568

PATIENT
  Sex: Female

DRUGS (3)
  1. MONTELUKAST [Suspect]
     Active Substance: MONTELUKAST SODIUM
     Dosage: 3-4 YEARS AGO
     Route: 065
  2. CLOPIDOGREL [Suspect]
     Active Substance: CLOPIDOGREL BISULFATE
     Indication: COMPRESSION FRACTURE
     Dosage: DOSE STRENGTH:  7.5/325MG; 3-4 YEARS AGO
     Route: 065
  3. METFORMIN [Suspect]
     Active Substance: METFORMIN HYDROCHLORIDE
     Dosage: 8-10 YEARS AGO
     Route: 065

REACTIONS (3)
  - Mitral valve disease [Unknown]
  - Electrocardiogram QT prolonged [Unknown]
  - Compression fracture [Unknown]

NARRATIVE: CASE EVENT DATE: 2000
